FAERS Safety Report 8004734-1 (Version None)
Quarter: 2011Q4

REPORT INFORMATION
  Report Type: 
  Country: None (occurrence: None)
  Receive Date: 20111223
  Receipt Date: 20111214
  Transmission Date: 20120403
  Serious: Yes (Disabling)
  Sender: FDA-Public Use
  Company Number: CN-JNJFOC-20111208372

PATIENT
  Age: 17 Year
  Sex: Female
  Weight: 69 kg

DRUGS (1)
  1. TOPAMAX [Suspect]
     Indication: EPILEPSY
     Route: 048
     Dates: start: 20111208, end: 20111214

REACTIONS (8)
  - INSOMNIA [None]
  - ASTHENIA [None]
  - FEELING JITTERY [None]
  - HYPOAESTHESIA [None]
  - FORMICATION [None]
  - PARAESTHESIA [None]
  - JOINT STIFFNESS [None]
  - SKIN TIGHTNESS [None]
